FAERS Safety Report 17993749 (Version 1)
Quarter: 2020Q3

REPORT INFORMATION
  Report Type: Spontaneous
  Country: AU (occurrence: AU)
  Receive Date: 20200708
  Receipt Date: 20200708
  Transmission Date: 20201103
  Serious: Yes (Other)
  Sender: FDA-Public Use
  Company Number: AU-TEVA-2020-AU-1797543

PATIENT

DRUGS (1)
  1. TESTOSTERONE UNK [Suspect]
     Active Substance: TESTOSTERONE
     Indication: ACCIDENTAL EXPOSURE TO PRODUCT BY CHILD
     Route: 061

REACTIONS (5)
  - Accidental exposure to product by child [Unknown]
  - Blood testosterone increased [Unknown]
  - Hair growth abnormal [Unknown]
  - Epiphyses premature fusion [Unknown]
  - Mood altered [Unknown]
